FAERS Safety Report 5989731-X (Version None)
Quarter: 2008Q4

REPORT INFORMATION
  Report Type: 
  Country: None (occurrence: None)
  Receive Date: 20081208
  Receipt Date: 20081124
  Transmission Date: 20090506
  Serious: Yes (Hospitalization)
  Sender: FDA-Public Use
  Company Number: 106467

PATIENT
  Age: 33 Year
  Sex: Female

DRUGS (3)
  1. ACETAMINOPHEN [Suspect]
     Indication: HEADACHE
     Dosage: ORAL
     Route: 048
  2. MERSYNDOL (PARACETAMOL, CODEINE, DOXYLAMINE) [Suspect]
     Indication: HEADACHE
  3. FLUOXETINE [Concomitant]

REACTIONS (21)
  - ACUTE HEPATIC FAILURE [None]
  - BRONCHOPULMONARY ASPERGILLOSIS [None]
  - CENTRAL NERVOUS SYSTEM LESION [None]
  - CEREBRAL ASPERGILLOSIS [None]
  - COAGULOPATHY [None]
  - COLLAPSE OF LUNG [None]
  - CONFUSIONAL STATE [None]
  - CONTINUOUS HAEMODIAFILTRATION [None]
  - CSF TEST ABNORMAL [None]
  - DYSKINESIA [None]
  - EYE MOVEMENT DISORDER [None]
  - GLASGOW COMA SCALE ABNORMAL [None]
  - INTRASPINAL ABSCESS [None]
  - LACTIC ACIDOSIS [None]
  - LIVER TRANSPLANT [None]
  - LIVER TRANSPLANT REJECTION [None]
  - OVERDOSE [None]
  - RENAL IMPAIRMENT [None]
  - RESPIRATORY FAILURE [None]
  - SEPTIC SHOCK [None]
  - THERAPEUTIC RESPONSE DECREASED [None]
